FAERS Safety Report 9477083 (Version 1)
Quarter: 2013Q3

REPORT INFORMATION
  Report Type: Other
  Country: GB (occurrence: GB)
  Receive Date: 20130826
  Receipt Date: 20130826
  Transmission Date: 20140515
  Serious: Yes (Other)
  Sender: FDA-Public Use
  Company Number: GB-PERRIGO-13GB008537

PATIENT
  Age: 73 Year
  Sex: Male

DRUGS (1)
  1. NAPROXEN 250MG 16028/0144 [Suspect]
     Indication: BACK PAIN
     Dosage: 500 MG, BID
     Route: 048
     Dates: start: 20130620, end: 20130717

REACTIONS (1)
  - International normalised ratio increased [Recovered/Resolved]
